FAERS Safety Report 11060379 (Version 1)
Quarter: 2015Q2

REPORT INFORMATION
  Report Type: Spontaneous
  Country: US (occurrence: US)
  Receive Date: 20150423
  Receipt Date: 20150423
  Transmission Date: 20150821
  Serious: Yes (Death, Hospitalization)
  Sender: FDA-Public Use
  Company Number: US-CELGENEUS-USA-2014101161

PATIENT
  Age: 82 Year
  Sex: Male

DRUGS (1)
  1. POMALYST [Suspect]
     Active Substance: POMALIDOMIDE
     Indication: PLASMA CELL MYELOMA
     Dosage: 4 MILLIGRAM
     Route: 048
     Dates: start: 201409, end: 201409

REACTIONS (4)
  - Hallucination [Unknown]
  - Plasma cell myeloma [Fatal]
  - Unevaluable event [Unknown]
  - Rash [Unknown]

NARRATIVE: CASE EVENT DATE: 2014
